FAERS Safety Report 8117681-1 (Version None)
Quarter: 2012Q1

REPORT INFORMATION
  Report Type: 
  Country: None (occurrence: None)
  Receive Date: 20120203
  Receipt Date: 20120203
  Transmission Date: 20120608
  Serious: Yes (Other)
  Sender: FDA-Public Use
  Company Number: None

PATIENT
  Age: 69 Year
  Sex: Female

DRUGS (5)
  1. LORAZEPAM [Concomitant]
  2. LISINOPRIL [Concomitant]
  3. LENOTHYROXINE [Concomitant]
  4. FAMOTIDINE [Concomitant]
  5. REVLIMID [Suspect]
     Indication: MULTIPLE MYELOMA
     Dosage: REVLIMID DAILY X21D/28D ORALLY
     Route: 048
     Dates: start: 20120110

REACTIONS (4)
  - PATHOLOGICAL FRACTURE [None]
  - RIB FRACTURE [None]
  - HUMERUS FRACTURE [None]
  - RASH [None]
